FAERS Safety Report 25442220 (Version 4)
Quarter: 2025Q4

REPORT INFORMATION
  Report Type: Report from Study
  Country: US (occurrence: US)
  Receive Date: 20250616
  Receipt Date: 20251029
  Transmission Date: 20260118
  Serious: Yes (Other)
  Sender: ABBVIE
  Company Number: US-ABBVIE-6323669

PATIENT
  Age: 79 Year
  Sex: Male

DRUGS (1)
  1. LUPRON [Suspect]
     Active Substance: LEUPROLIDE ACETATE
     Indication: Product used for unknown indication
     Dosage: 6 DOSAGE FORMS FREQUENCY: 1 TIME IN EVERY 6 MONTHS
     Route: 065
     Dates: start: 20250201

REACTIONS (5)
  - Prostate cancer [Unknown]
  - Blood iron decreased [Unknown]
  - Prostatic specific antigen increased [Unknown]
  - Injection site bruising [Recovering/Resolving]
  - Injection site pain [Recovering/Resolving]

NARRATIVE: CASE EVENT DATE: 20250101
